FAERS Safety Report 10222556 (Version 1)
Quarter: 2014Q2

REPORT INFORMATION
  Report Type: Spontaneous
  Country: US (occurrence: US)
  Receive Date: 20140606
  Receipt Date: 20140606
  Transmission Date: 20141212
  Serious: No
  Sender: FDA-Public Use
  Company Number: US-MYLANLABS-2013S1017726

PATIENT
  Age: 10 Year
  Sex: Female
  Weight: 31.75 kg

DRUGS (2)
  1. DOXEPIN HYDROCHLORIDE CAPSULES, USP [Suspect]
     Route: 048
     Dates: start: 20130805
  2. PREDNISONE [Concomitant]
     Indication: ECZEMA
     Dosage: TAPER DOSE

REACTIONS (2)
  - Eczema [Not Recovered/Not Resolved]
  - Reaction to drug excipients [Not Recovered/Not Resolved]
